FAERS Safety Report 7280756-3 (Version None)
Quarter: 2011Q1

REPORT INFORMATION
  Report Type: 
  Country: None (occurrence: None)
  Receive Date: 20110208
  Receipt Date: 20110128
  Transmission Date: 20110831
  Serious: Yes (Hospitalization)
  Sender: FDA-Public Use
  Company Number: US-JNJFOC-20110100769

PATIENT
  Sex: Male
  Weight: 91.17 kg

DRUGS (8)
  1. PREDNISONE [Concomitant]
     Indication: CROHN'S DISEASE
     Dosage: TAPERING
     Route: 065
  2. NYSTATIN [Concomitant]
     Indication: CROHN'S DISEASE
     Route: 065
  3. REMICADE [Suspect]
     Route: 042
  4. LISINOPRIL [Concomitant]
     Indication: HYPERTENSION
     Route: 065
  5. MERCAPTOPURINE [Concomitant]
     Indication: CROHN'S DISEASE
     Route: 065
  6. THALIDOMIDE [Concomitant]
     Indication: CROHN'S DISEASE
     Route: 065
  7. REMICADE [Suspect]
     Indication: CROHN'S DISEASE
     Dosage: 53 TOTAL INFUSIONS  DOSE VARIED
     Route: 042
  8. LIALDA [Concomitant]
     Indication: CROHN'S DISEASE
     Dosage: TOTAL DAILY DOSE 4.8 G
     Route: 065

REACTIONS (3)
  - CROHN'S DISEASE [None]
  - JEJUNAL PERFORATION [None]
  - HISTOPLASMOSIS [None]
